FAERS Safety Report 17812006 (Version 2)
Quarter: 2020Q2

REPORT INFORMATION
  Report Type: Spontaneous
  Country: BE (occurrence: BE)
  Receive Date: 20200521
  Receipt Date: 20200528
  Transmission Date: 20200714
  Serious: Yes (Death, Life-Threatening, Hospitalization, Other)
  Sender: FDA-Public Use
  Company Number: NVSC2020BE139088

PATIENT
  Age: 59 Year
  Sex: Male
  Weight: 78 kg

DRUGS (4)
  1. CARBOPLATIN. [Suspect]
     Active Substance: CARBOPLATIN
     Indication: PRODUCT USED FOR UNKNOWN INDICATION
     Dosage: UNK
     Route: 065
  2. FLUOROURACIL. [Suspect]
     Active Substance: FLUOROURACIL
     Indication: SQUAMOUS CELL CARCINOMA OF HEAD AND NECK
     Dosage: 4000 MG/M2 (TOTAL DAILY DOSAGE: 96 U)
     Route: 042
     Dates: start: 20200207
  3. CISPLATIN. [Suspect]
     Active Substance: CISPLATIN
     Indication: PRODUCT USED FOR UNKNOWN INDICATION
     Dosage: 100 MG/M2
     Route: 042
     Dates: start: 20200207
  4. KEYTRUDA [Suspect]
     Active Substance: PEMBROLIZUMAB
     Indication: SQUAMOUS CELL CARCINOMA OF HEAD AND NECK
     Dosage: 1 OT, Q3W
     Route: 065
     Dates: start: 20200207, end: 20200217

REACTIONS (6)
  - Multiple organ dysfunction syndrome [Unknown]
  - Sepsis [Unknown]
  - Malignant neoplasm progression [Unknown]
  - Colitis [Fatal]
  - Shock [Unknown]
  - Pancytopenia [Unknown]

NARRATIVE: CASE EVENT DATE: 2020
